FAERS Safety Report 24044728 (Version 1)
Quarter: 2024Q3

REPORT INFORMATION
  Report Type: Spontaneous
  Country: FR (occurrence: FR)
  Receive Date: 20240703
  Receipt Date: 20240703
  Transmission Date: 20241016
  Serious: Yes (Hospitalization, Other)
  Sender: BAXTER
  Company Number: None

PATIENT
  Age: 55 Year
  Sex: Female
  Weight: 98 kg

DRUGS (4)
  1. DOXORUBICIN [Suspect]
     Active Substance: DOXORUBICIN
     Indication: Hodgkin^s disease
     Dosage: 46 MG, 1 TOTAL
     Route: 042
     Dates: start: 20240423, end: 20240423
  2. ADCETRIS [Suspect]
     Active Substance: BRENTUXIMAB VEDOTIN
     Indication: Hodgkin^s disease
     Dosage: 175 MG (POWDER FOR SOLUTION TO DILUTE FOR PERFUSION)
     Route: 042
     Dates: start: 20240422, end: 20240422
  3. DACARBAZINE [Suspect]
     Active Substance: DACARBAZINE
     Indication: Hodgkin^s disease
     Dosage: 720 MG, 1 TOTAL
     Route: 042
     Dates: start: 20240422, end: 20240422
  4. VINBLASTINE SULFATE [Suspect]
     Active Substance: VINBLASTINE SULFATE
     Indication: Hodgkin^s disease
     Dosage: 11.5 MG, 1 TOTAL (POWDER FOR SOLUTION INJECTABLE)
     Route: 042
     Dates: start: 20240422, end: 20240422

REACTIONS (2)
  - Colitis [Not Recovered/Not Resolved]
  - Neutropenia [Not Recovered/Not Resolved]
